FAERS Safety Report 6542642-3 (Version None)
Quarter: 2010Q1

REPORT INFORMATION
  Report Type: 
  Country: None (occurrence: None)
  Receive Date: 20100119
  Receipt Date: 20100107
  Transmission Date: 20100710
  Serious: Yes (Other)
  Sender: FDA-Public Use
  Company Number: FR-ELI_LILLY_AND_COMPANY-FR200910007137

PATIENT
  Age: 47 Year
  Sex: Female
  Weight: 62 kg

DRUGS (9)
  1. CYMBALTA [Suspect]
     Indication: DEPRESSION
     Dosage: 60 MG, DAILY (1/D)
     Route: 048
     Dates: start: 20090611, end: 20090709
  2. CYMBALTA [Suspect]
     Dosage: 90 MG, DAILY (1/D)
     Route: 048
     Dates: start: 20090710, end: 20091102
  3. CYMBALTA [Suspect]
     Dosage: UNK, DAILY (1/D)
     Route: 048
     Dates: start: 20091103, end: 20091204
  4. IXPRIM [Concomitant]
     Dosage: UNK, UNKNOWN
     Route: 048
  5. MYOLASTAN [Concomitant]
     Dosage: UNK, UNKNOWN
     Route: 048
  6. ANAFRANIL [Concomitant]
     Dosage: UNK, UNKNOWN
     Route: 048
  7. PIASCLEDINE /00809501/ [Concomitant]
     Indication: OSTEOARTHRITIS
     Dosage: UNK, UNKNOWN
     Route: 048
     Dates: end: 20091120
  8. STRUCTUM [Concomitant]
     Indication: OSTEOARTHRITIS
     Dosage: UNK, UNKNOWN
     Route: 048
  9. EFFERALGAN /00020001/ [Concomitant]
     Dosage: UNK, UNKNOWN
     Route: 065

REACTIONS (1)
  - COLITIS COLLAGENOUS [None]
